FAERS Safety Report 8461179-8 (Version None)
Quarter: 2012Q2

REPORT INFORMATION
  Report Type: 
  Country: None (occurrence: None)
  Receive Date: 20120625
  Receipt Date: 20120621
  Transmission Date: 20120825
  Serious: Yes (Other)
  Sender: FDA-Public Use
  Company Number: US-PFIZER INC-2012081081

PATIENT
  Sex: Female
  Weight: 52.608 kg

DRUGS (17)
  1. SOMA [Concomitant]
     Dosage: UNK
  2. SEROQUEL XR [Concomitant]
     Indication: SLEEP DISORDER
  3. ZOFRAN [Concomitant]
     Dosage: 32 MG, 1X/DAY
  4. SEROQUEL [Concomitant]
     Dosage: UNK
  5. CHANTIX [Suspect]
     Dosage: 0.5 MG, UNK
     Dates: start: 20120415
  6. SINGULAIR [Concomitant]
     Indication: ASTHMA
     Dosage: 10 MG, 2X/DAY
  7. REMERON [Concomitant]
     Dosage: UNK
  8. CHANTIX [Suspect]
     Indication: SMOKING CESSATION THERAPY
     Dosage: 0.5 MG, 1X/DAY
     Route: 048
     Dates: start: 20120316, end: 20120330
  9. ZOCOR [Concomitant]
     Indication: BLOOD CHOLESTEROL INCREASED
     Dosage: 20 MG, DAILY
  10. SEROQUEL XR [Concomitant]
     Indication: ANXIETY
     Dosage: 300 MG, 1X/DAY
  11. EFFEXOR [Concomitant]
     Indication: ANXIETY
  12. NEURONTIN [Concomitant]
     Dosage: UNK
  13. EFFEXOR [Concomitant]
     Indication: DEPRESSION
     Dosage: 225 MG, 1X/DAY
  14. NEXIUM [Concomitant]
     Indication: GASTROOESOPHAGEAL REFLUX DISEASE
     Dosage: 40 MG, 2X/DAY
  15. AMITRIPTYLINE [Concomitant]
     Indication: GASTRIC DISORDER
     Dosage: 100 MG, 1X/DAY
  16. CELEBREX [Concomitant]
     Indication: OSTEOARTHRITIS
     Dosage: 200 MG, 2X/DAY
  17. ZOSYN [Concomitant]
     Dosage: UNK

REACTIONS (7)
  - MEMORY IMPAIRMENT [None]
  - ABNORMAL BEHAVIOUR [None]
  - FALL [None]
  - CONTUSION [None]
  - ABNORMAL SLEEP-RELATED EVENT [None]
  - DEPRESSION [None]
  - SOMNAMBULISM [None]
